FAERS Safety Report 9752246 (Version 3)
Quarter: 2014Q1

REPORT INFORMATION
  Report Type: Report from Study
  Country: TW (occurrence: TW)
  Receive Date: 20131213
  Receipt Date: 20140316
  Transmission Date: 20141002
  Serious: Yes (Death, Hospitalization, Other)
  Sender: FDA-Public Use
  Company Number: TW-009507513-1312TWN002191

PATIENT
  Age: 67 Year
  Sex: Male
  Weight: 74.9 kg

DRUGS (12)
  1. DEXAMETHASONE [Suspect]
     Indication: PLASMA CELL MYELOMA
     Dosage: 20 MG ON DAYS ONE, TWO, FOUR, FIVE, EIGHT, NINE, 11 AND 12 EVERY 21 DAYS
     Route: 048
     Dates: start: 20130215, end: 20130528
  2. STUDY DRUG (UNSPECIFIED) [Suspect]
     Indication: PLASMA CELL MYELOMA
     Dosage: EVERY 21 DAYS
     Route: 042
     Dates: start: 20130215, end: 20130517
  3. BORTEZOMIB [Suspect]
     Indication: PLASMA CELL MYELOMA
     Dosage: 1.3 MG/M2 ON DAYS ONE, FOUR EIGHT AND 11 EVERY 21 DAYS
     Route: 058
     Dates: start: 20130215, end: 20130527
  4. ALGINIC ACID [Concomitant]
     Dosage: UNK
     Dates: start: 20130524
  5. LOPERAMIDE HYDROCHLORIDE [Concomitant]
     Dosage: UNK
     Dates: start: 20130524
  6. BUTYLSCOPOLAMINE BROMIDE [Concomitant]
     Dosage: UNK
     Dates: start: 20130524
  7. MELOXICAM [Concomitant]
     Dosage: UNK
     Dates: start: 20130524
  8. AMIODARONE HYDROCHLORIDE [Concomitant]
     Dosage: UNK
     Dates: start: 20130524
  9. KAOLIN [Concomitant]
     Dosage: UNK
     Dates: start: 20130524
  10. SODIUM CHLORIDE [Concomitant]
     Dosage: UNK
     Dates: start: 20130524
  11. HERBESSER [Concomitant]
     Dosage: UNK
     Dates: start: 20130524
  12. COMBIVENT [Concomitant]

REACTIONS (4)
  - Sepsis [Fatal]
  - Infection [Recovered/Resolved]
  - Platelet count decreased [Recovered/Resolved]
  - Altered state of consciousness [Not Recovered/Not Resolved]
